FAERS Safety Report 7064454-7 (Version None)
Quarter: 2010Q4

REPORT INFORMATION
  Report Type: 
  Country: None (occurrence: None)
  Receive Date: 20101027
  Receipt Date: 20101014
  Transmission Date: 20110411
  Serious: Yes (Other)
  Sender: FDA-Public Use
  Company Number: AU-PFIZER INC-2010131278

PATIENT
  Age: 55 Year
  Sex: Male

DRUGS (16)
  1. NEURONTIN [Suspect]
     Indication: NEURALGIA
     Dosage: 100 MG, 3X/DAY
     Dates: start: 20100921
  2. NEURONTIN [Suspect]
     Indication: SPINAL DISORDER
  3. EFFEXOR [Concomitant]
     Dosage: UNK
  4. ATACAND [Concomitant]
     Dosage: UNK
  5. NEXIUM [Concomitant]
     Dosage: UNK
  6. LIPEX [Concomitant]
     Dosage: UNK
  7. BACLOFEN [Concomitant]
     Dosage: UNK
  8. DI-GESIC [Concomitant]
     Dosage: UNK
  9. GLUCOSAMINE [Concomitant]
     Dosage: UNK
  10. MAGNESIUM SULFATE [Concomitant]
     Dosage: UNK
  11. CALCIUM [Concomitant]
     Dosage: UNK
  12. GARLIC [Concomitant]
     Dosage: UNK
  13. ASCORBIC ACID [Concomitant]
     Dosage: UNK
  14. HORSE-RADISH [Concomitant]
     Dosage: UNK
  15. TEMAZEPAM [Concomitant]
     Dosage: UNK
  16. VITAMINS [Suspect]
     Dosage: UNK

REACTIONS (7)
  - ANTISOCIAL BEHAVIOUR [None]
  - CHEST PAIN [None]
  - COUGH [None]
  - DYSPHAGIA [None]
  - OROPHARYNGEAL PAIN [None]
  - PLEURISY [None]
  - WHITE BLOOD CELL COUNT INCREASED [None]
